FAERS Safety Report 13240208 (Version 1)
Quarter: 2017Q1

REPORT INFORMATION
  Report Type: Spontaneous
  Country: AU (occurrence: AU)
  Receive Date: 20170216
  Receipt Date: 20170216
  Transmission Date: 20170428
  Serious: Yes (Hospitalization, Other)
  Sender: FDA-Public Use
  Company Number: AU-PFIZER INC-2016594007

PATIENT
  Age: 53 Year
  Sex: Male
  Weight: 92 kg

DRUGS (5)
  1. PARACETAMOL [Concomitant]
     Active Substance: ACETAMINOPHEN
     Route: 048
  2. LYRICA [Suspect]
     Active Substance: PREGABALIN
     Indication: NEURALGIA
     Dosage: 75 MG, 2X/DAY
     Route: 048
     Dates: start: 20161020, end: 20161031
  3. COVERSYL [Concomitant]
     Active Substance: PERINDOPRIL
     Indication: HYPERTENSION
     Dosage: UNK UNK, DAILY
     Route: 048
     Dates: start: 20160121
  4. CHAMPIX [Concomitant]
     Active Substance: VARENICLINE TARTRATE
     Indication: SMOKING CESSATION THERAPY
     Dosage: UNK UNK, 2X/DAY
     Route: 048
     Dates: start: 20160916
  5. AMLODIPINE [Concomitant]
     Active Substance: AMLODIPINE BESYLATE
     Indication: HYPERTENSION
     Dosage: UNK UNK, DAILY
     Route: 048
     Dates: start: 20160916

REACTIONS (5)
  - Suicidal ideation [Recovered/Resolved]
  - Sleep disorder [Recovered/Resolved]
  - Depressed mood [Recovered/Resolved]
  - Irritability [Recovered/Resolved]
  - Depression [Unknown]

NARRATIVE: CASE EVENT DATE: 20161021
